FAERS Safety Report 5525657-3 (Version None)
Quarter: 2007Q4

REPORT INFORMATION
  Report Type: 
  Country: None (occurrence: None)
  Receive Date: 20071120
  Receipt Date: 20071120
  Transmission Date: 20080405
  Serious: No
  Sender: FDA-Public Use
  Company Number: None

PATIENT
  Sex: Female
  Weight: 65.7716 kg

DRUGS (1)
  1. DILUTE GADOLINIUM/IODINAT [Suspect]
     Indication: LIMB INJURY
     Dates: start: 20070418, end: 20070418

REACTIONS (9)
  - ARTHRALGIA [None]
  - HYPOAESTHESIA [None]
  - LABORATORY TEST ABNORMAL [None]
  - MASS [None]
  - MUSCULAR WEAKNESS [None]
  - MUSCULOSKELETAL STIFFNESS [None]
  - OEDEMA PERIPHERAL [None]
  - PAIN IN EXTREMITY [None]
  - PLANTAR FASCIITIS [None]
